FAERS Safety Report 7070723-7 (Version None)
Quarter: 2010Q4

REPORT INFORMATION
  Report Type: 
  Country: None (occurrence: None)
  Receive Date: 20101027
  Receipt Date: 20101027
  Transmission Date: 20110411
  Serious: Yes (Other)
  Sender: FDA-Public Use
  Company Number: None

PATIENT
  Sex: Female
  Weight: 61.2356 kg

DRUGS (2)
  1. CEFTIN [Suspect]
     Indication: SINUSITIS
     Dates: start: 20100927, end: 20101004
  2. CEFUROXIME [Concomitant]

REACTIONS (4)
  - ASTHENIA [None]
  - DIZZINESS [None]
  - ENTERITIS INFECTIOUS [None]
  - NAUSEA [None]
